FAERS Safety Report 10240855 (Version 1)
Quarter: 2014Q2

REPORT INFORMATION
  Report Type: Report from Study
  Country: BR (occurrence: BR)
  Receive Date: 20140617
  Receipt Date: 20140617
  Transmission Date: 20141212
  Serious: Yes (Hospitalization, Other)
  Sender: FDA-Public Use
  Company Number: PHHY2014BR071785

PATIENT
  Age: 50 Year
  Sex: Male
  Weight: 77.2 kg

DRUGS (10)
  1. NEORAL [Suspect]
     Indication: RENAL TRANSPLANT
     Dosage: 75 MG, BID
     Route: 048
     Dates: start: 20091008
  2. NEORAL [Suspect]
     Indication: IMMUNOSUPPRESSION
  3. MYCOPHENOLATE SODIUM [Concomitant]
     Indication: RENAL TRANSPLANT
     Dosage: 720 MG, BID
     Dates: start: 20081005
  4. AMLODIPINE [Concomitant]
     Indication: HYPERTENSION
     Dosage: UNK UKN, UNK
     Route: 048
     Dates: start: 20090305
  5. ACETYLSALICYLIC ACID [Concomitant]
     Indication: THROMBOSIS PROPHYLAXIS
     Dosage: UNK UKN, UNK
     Route: 048
     Dates: start: 20081006
  6. OMEPRAZOLE [Concomitant]
     Indication: PROPHYLAXIS
     Dosage: UNK UKN, UNK
     Route: 048
     Dates: start: 20081028
  7. SULFAMETHOXAZOL W/TRIMETOPRIM [Concomitant]
     Indication: PROPHYLAXIS
     Dosage: UNK UKN, UNK
     Route: 048
     Dates: start: 20120927
  8. GLIFAGE [Concomitant]
     Indication: DIABETES MELLITUS
     Dosage: UNK UKN, UNK
     Route: 048
     Dates: start: 20121213
  9. NPH INSULIN [Concomitant]
     Indication: DIABETES MELLITUS
     Dosage: UNK UKN, UNK
     Dates: start: 20101217
  10. PREDNISONE [Concomitant]
     Indication: RENAL TRANSPLANT
     Dosage: 5 MG SINGLE
     Route: 048
     Dates: start: 20081231

REACTIONS (12)
  - Arthritis bacterial [Recovered/Resolved]
  - Arthralgia [Unknown]
  - Joint swelling [Unknown]
  - Pyrexia [Recovered/Resolved]
  - Dysstasia [Unknown]
  - Mobility decreased [Unknown]
  - Bacterial infection [Unknown]
  - Road traffic accident [Unknown]
  - Limb injury [Unknown]
  - Skin infection [Unknown]
  - Oedema peripheral [Unknown]
  - Hyperaemia [Unknown]
